FAERS Safety Report 19969052 (Version 1)
Quarter: 2021Q4

REPORT INFORMATION
  Report Type: Spontaneous
  Country: MA (occurrence: MA)
  Receive Date: 20211019
  Receipt Date: 20211019
  Transmission Date: 20220303
  Serious: Yes (Other)
  Sender: FDA-Public Use
  Company Number: MA-PFIZER INC-202101316480

PATIENT
  Age: 66 Year
  Sex: Female

DRUGS (5)
  1. PALBOCICLIB [Suspect]
     Active Substance: PALBOCICLIB
     Indication: Breast cancer
     Dosage: 100 MG DAILY 3WEEKS /4
  2. ANASTROZOLE [Concomitant]
     Active Substance: ANASTROZOLE
  3. ZOLEDRONIC ACID [Concomitant]
     Active Substance: ZOLEDRONIC ACID
  4. CA + D3 [Concomitant]
  5. FULVESTRANT 1A PHARMA [Concomitant]

REACTIONS (5)
  - Neutropenia [Recovering/Resolving]
  - Uterine leiomyoma [Unknown]
  - Intermenstrual bleeding [Unknown]
  - Arthralgia [Unknown]
  - Pelvic pain [Unknown]
